FAERS Safety Report 19353030 (Version 1)
Quarter: 2021Q2

REPORT INFORMATION
  Report Type: Spontaneous
  Country: CN (occurrence: CN)
  Receive Date: 20210531
  Receipt Date: 20210531
  Transmission Date: 20210717
  Serious: Yes (Other)
  Sender: FDA-Public Use
  Company Number: CN-PFIZER INC-2021585516

PATIENT
  Age: 67 Year
  Sex: Female
  Weight: 48 kg

DRUGS (2)
  1. LEUCOVORIN CALCIUM. [Concomitant]
     Active Substance: LEUCOVORIN CALCIUM
     Indication: PROPHYLAXIS
  2. METHOTREXATE. [Suspect]
     Active Substance: METHOTREXATE
     Indication: ACUTE LYMPHOCYTIC LEUKAEMIA
     Dosage: 1000.000 MG, 1X/DAY
     Route: 041
     Dates: start: 20210414, end: 20210414

REACTIONS (11)
  - Discomfort [Unknown]
  - Vomiting [Unknown]
  - Lip ulceration [Unknown]
  - Nausea [Unknown]
  - Oral disorder [Unknown]
  - Gastroenteritis [Unknown]
  - Gastrointestinal haemorrhage [Unknown]
  - Stomatitis [Unknown]
  - Pain [Unknown]
  - Myelosuppression [Unknown]
  - Mouth ulceration [Unknown]

NARRATIVE: CASE EVENT DATE: 20210415
